FAERS Safety Report 18616661 (Version 4)
Quarter: 2021Q3

REPORT INFORMATION
  Report Type: Report from Study
  Country: US (occurrence: US)
  Receive Date: 20201215
  Receipt Date: 20210909
  Transmission Date: 20211014
  Serious: Yes (Other)
  Sender: FDA-Public Use
  Company Number: US-TAIHO ONCOLOGY  INC-EU-2020-04291

PATIENT
  Age: 49 Year
  Sex: Female
  Weight: 103.51 kg

DRUGS (32)
  1. MIRALAX [Concomitant]
     Active Substance: POLYETHYLENE GLYCOL 3350
  2. FLUCONAZOLE. [Concomitant]
     Active Substance: FLUCONAZOLE
  3. MAGIC MOUTHWASH [Concomitant]
     Active Substance: DIPHENHYDRAMINE HYDROCHLORIDE\LIDOCAINE HYDROCHLORIDE\NYSTATIN
  4. LONSURF [Suspect]
     Active Substance: TIPIRACIL HYDROCHLORIDE\TRIFLURIDINE
     Dosage: CYCLE 15
     Route: 048
     Dates: start: 202008
  5. MINOCYCLINE HCI [Concomitant]
  6. HYDROCHLOROTHIAZIDE. [Concomitant]
     Active Substance: HYDROCHLOROTHIAZIDE
  7. ALPRAZOLAM. [Concomitant]
     Active Substance: ALPRAZOLAM
  8. NYSTATIN?TRIAMCINOLONE [Concomitant]
  9. CLEOCIN?T [Concomitant]
  10. ONDANSETRON HCL [Concomitant]
     Active Substance: ONDANSETRON HYDROCHLORIDE
  11. SLOW IRON [Concomitant]
  12. XANAX [Concomitant]
     Active Substance: ALPRAZOLAM
  13. FLUOCINONIDE. [Concomitant]
     Active Substance: FLUOCINONIDE
  14. KLOR?CON M10 [Concomitant]
     Active Substance: POTASSIUM CHLORIDE
  15. VITAMIN D [Concomitant]
     Active Substance: VITAMIN D NOS
  16. OMEPRAZOLE. [Concomitant]
     Active Substance: OMEPRAZOLE
  17. FERROUS SULFATE. [Concomitant]
     Active Substance: FERROUS SULFATE
  18. BACTROBAN NASAL [Concomitant]
     Route: 045
  19. NYSTATIN. [Concomitant]
     Active Substance: NYSTATIN
  20. LIDOCAINE HCI [Concomitant]
     Dosage: URETHRAL/MUCOSAL
     Route: 066
  21. ANUSOL?HC [Concomitant]
     Active Substance: HYDROCORTISONE
  22. KETOCONAZOLE. [Concomitant]
     Active Substance: KETOCONAZOLE
  23. HYOSCYAMINE SULFATE. [Concomitant]
     Active Substance: HYOSCYAMINE SULFATE
  24. METOCLOPRAMIDE HCI [Concomitant]
  25. LOMOTIL [Concomitant]
     Active Substance: ATROPINE SULFATE\DIPHENOXYLATE HYDROCHLORIDE
  26. OXYCODONE?ACETAMINOPHEN [Concomitant]
     Active Substance: ACETAMINOPHEN\OXYCODONE HYDROCHLORIDE
  27. FUROSEMIDE. [Concomitant]
     Active Substance: FUROSEMIDE
  28. LONSURF [Suspect]
     Active Substance: TIPIRACIL HYDROCHLORIDE\TRIFLURIDINE
     Indication: COLON CANCER
     Dosage: CURRENT CYCLE UNKNOWN
     Route: 048
     Dates: start: 20200824
  29. OXYCODONE HYDROCHLORIDE. [Concomitant]
     Active Substance: OXYCODONE HYDROCHLORIDE
  30. ANUCORT?HC [Concomitant]
     Active Substance: HYDROCORTISONE ACETATE
  31. HYDROCORTISONE (PERIANAL) [Concomitant]
  32. IBUPROFEN. [Concomitant]
     Active Substance: IBUPROFEN

REACTIONS (5)
  - Alopecia [Unknown]
  - Therapy interrupted [Unknown]
  - Product distribution issue [Unknown]
  - Metastases to lymph nodes [Unknown]
  - Nausea [Unknown]
